FAERS Safety Report 8429493-X (Version None)
Quarter: 2012Q2

REPORT INFORMATION
  Report Type: 
  Country: None (occurrence: None)
  Receive Date: 20120612
  Receipt Date: 20120531
  Transmission Date: 20120825
  Serious: No
  Sender: FDA-Public Use
  Company Number: JP-UCBSA-058851

PATIENT

DRUGS (1)
  1. KEPPRA [Suspect]
     Dosage: UNKNOWN DOSE
     Route: 048

REACTIONS (1)
  - PLATELET COUNT DECREASED [None]
